FAERS Safety Report 10263192 (Version 2)
Quarter: 2014Q2

REPORT INFORMATION
  Report Type: Report from Study
  Country: US (occurrence: US)
  Receive Date: 20140626
  Receipt Date: 20140626
  Transmission Date: 20141212
  Serious: Yes (Death)
  Sender: FDA-Public Use
  Company Number: US-MYLANLABS-2014S1005734

PATIENT
  Age: 92 Year
  Sex: Female

DRUGS (5)
  1. CLOZAPINE TABLETS [Suspect]
     Route: 048
     Dates: start: 20131028, end: 20140128
  2. IRON [Concomitant]
  3. TRAZODONE [Concomitant]
  4. ZYPREXA [Concomitant]
  5. DEPAKOTE [Concomitant]
     Indication: DEMENTIA

REACTIONS (1)
  - Death [Fatal]
